FAERS Safety Report 7472447-0 (Version None)
Quarter: 2011Q2

REPORT INFORMATION
  Report Type: 
  Country: None (occurrence: None)
  Receive Date: 20110511
  Receipt Date: 20110427
  Transmission Date: 20111010
  Serious: Yes (Other)
  Sender: FDA-Public Use
  Company Number: PHHY2011BR37331

PATIENT
  Age: 31 Year
  Sex: Male
  Weight: 94 kg

DRUGS (1)
  1. CLOZAPINE [Suspect]
     Indication: PSYCHOTIC DISORDER
     Dosage: 100 MG, BID
     Dates: end: 20110415

REACTIONS (6)
  - PARANOIA [None]
  - WEIGHT INCREASED [None]
  - SPEECH DISORDER [None]
  - DYSPEPSIA [None]
  - SALIVARY HYPERSECRETION [None]
  - VOMITING [None]
